FAERS Safety Report 9128291 (Version 1)
Quarter: 2013Q1

REPORT INFORMATION
  Report Type: Spontaneous
  Country: US (occurrence: US)
  Receive Date: 20130125
  Receipt Date: 20130125
  Transmission Date: 20140127
  Serious: Yes (Other)
  Sender: FDA-Public Use
  Company Number: US-VERTEX PHARMACEUTICALS INC.-2013-000272

PATIENT
  Age: 55 Year
  Sex: Female

DRUGS (7)
  1. INCIVEK [Suspect]
     Indication: HEPATITIS C
     Dosage: UNK
     Dates: end: 20111123
  2. INCIVEK [Suspect]
     Dosage: UNK
     Dates: start: 20111130, end: 20120104
  3. PEGYLATED INTERFERON ALFA-2A [Suspect]
     Indication: HEPATITIS C
     Dosage: 180 ?G, UNK
     Dates: start: 20111026
  4. RIBAVIRIN [Suspect]
     Indication: HEPATITIS C
     Dosage: 1000 MG, UNK
     Dates: start: 20111026
  5. RIBAVIRIN [Suspect]
     Dosage: UNK
     Dates: start: 20111130
  6. PROCRIT                            /00909301/ [Suspect]
  7. XIFAXAN [Concomitant]

REACTIONS (4)
  - Anaemia [Recovered/Resolved]
  - Rash [Unknown]
  - Pruritus [Unknown]
  - Nausea [Unknown]
